FAERS Safety Report 22157882 (Version 4)
Quarter: 2024Q1

REPORT INFORMATION
  Report Type: Spontaneous
  Country: US (occurrence: US)
  Receive Date: 20230330
  Receipt Date: 20240312
  Transmission Date: 20240409
  Serious: No
  Sender: FDA-Public Use
  Company Number: US-PFIZER INC-PV202300058307

PATIENT
  Age: 51 Year
  Sex: Female

DRUGS (8)
  1. IBRANCE [Suspect]
     Active Substance: PALBOCICLIB
     Indication: Breast cancer female
     Dosage: 125 MG, CYCLIC (DAILY FOR 21 DAYS THEN OFF FOR 7 DAYS)
     Route: 048
     Dates: start: 20230117
  2. IBRANCE [Suspect]
     Active Substance: PALBOCICLIB
     Dosage: 100 MG, CYCLIC (DAILY, 21 DAYS THEN 7 DAYS OFF)
     Route: 048
     Dates: start: 20230908
  3. ACYCLOVIR [Concomitant]
     Active Substance: ACYCLOVIR
     Dosage: UNK
  4. CARBOPLATIN [Concomitant]
     Active Substance: CARBOPLATIN
     Dosage: 600/60ML
  5. DOCETAXEL [Concomitant]
     Active Substance: DOCETAXEL\DOCETAXEL ANHYDROUS
     Dosage: 160/16ML
  6. FULVESTRANT [Concomitant]
     Active Substance: FULVESTRANT
     Dosage: 250/5ML
  7. HERCEPTIN [Concomitant]
     Active Substance: TRASTUZUMAB
     Dosage: UNK
  8. ZOFRAN [Concomitant]
     Active Substance: ONDANSETRON HYDROCHLORIDE
     Dosage: UNK

REACTIONS (1)
  - Stomatitis [Unknown]
